FAERS Safety Report 8978923 (Version 1)
Quarter: 2012Q4

REPORT INFORMATION
  Report Type: Spontaneous
  Country: US (occurrence: None)
  Receive Date: 20121218
  Receipt Date: 20121218
  Transmission Date: 20130627
  Serious: Yes (Other)
  Sender: FDA-Public Use
  Company Number: None

PATIENT
  Age: 53 Year
  Sex: Female
  Weight: 64 kg

DRUGS (2)
  1. BENLYSTA [Suspect]
     Indication: SYSTEMIC LUPUS ERYTHEMATOSUS
     Dosage: (400mg+120mg x 2)
     Route: 042
     Dates: start: 201207, end: 20120809
  2. BENLYSTA [Suspect]

REACTIONS (6)
  - Chest discomfort [None]
  - Neck pain [None]
  - Dyspnoea [None]
  - Dizziness [None]
  - Headache [None]
  - Infusion related reaction [None]
